FAERS Safety Report 5736004-6 (Version None)
Quarter: 2008Q2

REPORT INFORMATION
  Report Type: 
  Country: None (occurrence: None)
  Receive Date: 20080513
  Receipt Date: 20080508
  Transmission Date: 20081010
  Serious: Yes (Hospitalization, Other)
  Sender: FDA-Public Use
  Company Number: US-BRISTOL-MYERS SQUIBB COMPANY-14174569

PATIENT
  Age: 57 Year
  Sex: Male

DRUGS (6)
  1. ERBITUX [Suspect]
     Dates: start: 20080430
  2. IRINOTECAN HCL [Concomitant]
  3. FLUOROURACIL [Concomitant]
     Indication: METASTATIC GASTRIC CANCER
  4. LEUCOVORIN CALCIUM [Concomitant]
  5. BENADRYL [Concomitant]
     Indication: PREMEDICATION
  6. ACETAMINOPHEN [Concomitant]
     Indication: PREMEDICATION

REACTIONS (2)
  - INFUSION RELATED REACTION [None]
  - PULMONARY OEDEMA [None]
